FAERS Safety Report 19035804 (Version 1)
Quarter: 2021Q1

REPORT INFORMATION
  Report Type: Report from Study
  Country: IT (occurrence: IT)
  Receive Date: 20210321
  Receipt Date: 20210321
  Transmission Date: 20210420
  Serious: Yes (Hospitalization)
  Sender: FDA-Public Use
  Company Number: IT-TEVA-2021-IT-1891557

PATIENT
  Age: 83 Year
  Sex: Male

DRUGS (3)
  1. MEXILETINE [Concomitant]
     Active Substance: MEXILETINE
  2. ALLOPURINOLO [Suspect]
     Active Substance: ALLOPURINOL
     Dosage: 300 MG
  3. COUMADIN [Suspect]
     Active Substance: WARFARIN SODIUM

REACTIONS (2)
  - Confusional state [Unknown]
  - Fatigue [Unknown]

NARRATIVE: CASE EVENT DATE: 20200731
